FAERS Safety Report 4444695-5 (Version None)
Quarter: 2004Q3

REPORT INFORMATION
  Report Type: 
  Country: None (occurrence: None)
  Receive Date: 20040902
  Receipt Date: 20040818
  Transmission Date: 20050211
  Serious: Yes (Other)
  Sender: FDA-Public Use
  Company Number: SUS1-2004-00483

PATIENT
  Age: 40 Year
  Sex: Female
  Weight: 59 kg

DRUGS (3)
  1. ADDERALL 10 [Suspect]
     Indication: ATTENTION DEFICIT/HYPERACTIVITY DISORDER
     Dosage: 20 MG, 1X/DAY:QD
     Dates: start: 20040706, end: 20040801
  2. PROZAC [Concomitant]
  3. BUSPAR [Concomitant]

REACTIONS (3)
  - HYPOTRICHOSIS [None]
  - SLEEP DISORDER [None]
  - SUICIDAL IDEATION [None]
